FAERS Safety Report 5432304-8 (Version None)
Quarter: 2007Q3

REPORT INFORMATION
  Report Type: 
  Country: None (occurrence: None)
  Receive Date: 20070731
  Receipt Date: 20070516
  Transmission Date: 20080115
  Serious: No
  Sender: FDA-Public Use
  Company Number: US200705004574

PATIENT
  Age: 65 Year
  Sex: Male

DRUGS (15)
  1. BYETTA [Suspect]
     Indication: TYPE 2 DIABETES MELLITUS
     Dosage: 5 UG, 2/D, SUBCUTANEOUS
     Route: 058
     Dates: start: 20070511
  2. GLIPIZIDE [Concomitant]
  3. FOSAMAX [Concomitant]
  4. ATENOLOL [Concomitant]
  5. XANAX [Concomitant]
  6. THYROID THERAPY [Concomitant]
  7. ASPIRIN [Concomitant]
  8. LASIX [Concomitant]
  9. PREDNISONE TAB [Concomitant]
  10. PLAQUENIL [Concomitant]
  11. METHOTREXATE [Concomitant]
  12. IRON (IRON) [Concomitant]
  13. IMDUR [Concomitant]
  14. LISINOPRIL [Concomitant]
  15. FOLIC ACID [Concomitant]

REACTIONS (5)
  - BLOOD GLUCOSE DECREASED [None]
  - COLD SWEAT [None]
  - FEELING ABNORMAL [None]
  - FEELING COLD [None]
  - VISION BLURRED [None]
